FAERS Safety Report 10155726 (Version 1)
Quarter: 2014Q2

REPORT INFORMATION
  Report Type: Spontaneous
  Country: US (occurrence: US)
  Receive Date: 20140506
  Receipt Date: 20140506
  Transmission Date: 20141212
  Serious: No
  Sender: FDA-Public Use
  Company Number: US-ASTRAZENECA-2013SE60073

PATIENT
  Age: 69 Year
  Sex: Male
  Weight: 77.1 kg

DRUGS (4)
  1. METOPROLOL [Suspect]
     Indication: HYPERTENSION
     Route: 048
     Dates: start: 2010
  2. PRILOSEC [Suspect]
     Indication: GASTROOESOPHAGEAL REFLUX DISEASE
     Route: 048
     Dates: start: 2012, end: 20130726
  3. HYDROCODONE [Concomitant]
     Indication: PAIN
     Route: 048
  4. TYLENOL [Concomitant]
     Indication: PAIN
     Route: 048

REACTIONS (3)
  - Gait disturbance [Unknown]
  - Activities of daily living impaired [Unknown]
  - Arthralgia [Unknown]
